FAERS Safety Report 23677229 (Version 3)
Quarter: 2024Q4

REPORT INFORMATION
  Report Type: Report from Study
  Country: US (occurrence: US)
  Receive Date: 20240327
  Receipt Date: 20241003
  Transmission Date: 20250115
  Serious: Yes (Hospitalization)
  Sender: ABBVIE
  Company Number: US-ABBVIE-5690816

PATIENT
  Sex: Female

DRUGS (4)
  1. SKYRIZI [Suspect]
     Active Substance: RISANKIZUMAB-RZAA
     Indication: Psoriasis
     Dosage: DOSAGE: 150 MG/ML FORM STRENGTH: 150 MILLIGRAM,WEEK 4
     Route: 058
     Dates: start: 20240103, end: 20240103
  2. SKYRIZI [Suspect]
     Active Substance: RISANKIZUMAB-RZAA
     Dosage: DOSAGE: 150 MG/ML FORM STRENGTH: 150 MILLIGRAM, ?WEEK 0
     Route: 058
     Dates: start: 20231206, end: 20231206
  3. SKYRIZI [Suspect]
     Active Substance: RISANKIZUMAB-RZAA
     Dosage: DOSAGE: 150 MG/ML FORM STRENGTH: 150 MILLIGRAM
     Route: 058
     Dates: start: 20240906
  4. LISINOPRIL [Suspect]
     Active Substance: LISINOPRIL
     Indication: Product used for unknown indication
     Route: 065

REACTIONS (9)
  - Drug hypersensitivity [Unknown]
  - Hypertension [Unknown]
  - Back pain [Unknown]
  - Gait disturbance [Unknown]
  - Arthralgia [Unknown]
  - Psoriatic arthropathy [Unknown]
  - Burning sensation [Not Recovered/Not Resolved]
  - Mobility decreased [Unknown]
  - Osteoarthritis [Unknown]

NARRATIVE: CASE EVENT DATE: 20240101
